FAERS Safety Report 7227383-1 (Version None)
Quarter: 2011Q1

REPORT INFORMATION
  Report Type: 
  Country: None (occurrence: None)
  Receive Date: 20110111
  Receipt Date: 20110111
  Transmission Date: 20110831
  Serious: Yes (Life-Threatening)
  Sender: FDA-Public Use
  Company Number: None

PATIENT
  Sex: Female
  Weight: 72.5755 kg

DRUGS (2)
  1. THYROID TAB [Suspect]
     Indication: HYPOTHYROIDISM
     Dosage: 2 TAB EVERY DAY
  2. THYROID TAB [Suspect]
     Indication: AUTOIMMUNE THYROIDITIS
     Dosage: 2 TAB EVERY DAY

REACTIONS (26)
  - DISTURBANCE IN ATTENTION [None]
  - WEIGHT INCREASED [None]
  - MOOD SWINGS [None]
  - BREAST PAIN [None]
  - CHEST PAIN [None]
  - GASTROINTESTINAL DISORDER [None]
  - ABDOMINAL DISTENSION [None]
  - AXILLARY PAIN [None]
  - BLOOD CHOLESTEROL INCREASED [None]
  - DEPRESSION [None]
  - FALL [None]
  - LIVER DISORDER [None]
  - ASTHENIA [None]
  - SKIN DISCOLOURATION [None]
  - ALOPECIA [None]
  - SKIN MASS [None]
  - FEELING ABNORMAL [None]
  - ARTHRALGIA [None]
  - BONE PAIN [None]
  - RESTLESSNESS [None]
  - INSOMNIA [None]
  - ABDOMINAL PAIN UPPER [None]
  - CRYING [None]
  - RETCHING [None]
  - MENTAL DISORDER [None]
  - PRODUCT FORMULATION ISSUE [None]
